FAERS Safety Report 7307786-7 (Version None)
Quarter: 2011Q1

REPORT INFORMATION
  Report Type: 
  Country: None (occurrence: None)
  Receive Date: 20110223
  Receipt Date: 20110214
  Transmission Date: 20110831
  Serious: Yes (Hospitalization)
  Sender: FDA-Public Use
  Company Number: US-JNJFOC-20110205431

PATIENT
  Sex: Male
  Weight: 57 kg

DRUGS (8)
  1. NEXIUM [Concomitant]
  2. LAMICTAL [Concomitant]
  3. OMEPRAZOLE [Concomitant]
  4. REMICADE [Suspect]
     Indication: INFLAMMATORY BOWEL DISEASE
     Route: 042
  5. KEPPRA [Concomitant]
  6. BUDESONIDE [Suspect]
     Indication: PRODUCT USED FOR UNKNOWN INDICATION
  7. FOLIC ACID [Concomitant]
  8. METHOTREXATE [Suspect]
     Indication: PRODUCT USED FOR UNKNOWN INDICATION

REACTIONS (1)
  - ABDOMINAL PAIN [None]
